FAERS Safety Report 6237432-5 (Version None)
Quarter: 2009Q2

REPORT INFORMATION
  Report Type: 
  Country: None (occurrence: None)
  Receive Date: 20090619
  Receipt Date: 20090611
  Transmission Date: 20091009
  Serious: Yes (Hospitalization)
  Sender: FDA-Public Use
  Company Number: JP-BAXTER-2009BH003670

PATIENT
  Age: 70 Year
  Sex: Male

DRUGS (10)
  1. ENDOXAN BAXTER [Suspect]
     Indication: IMMUNOSUPPRESSION
     Route: 041
     Dates: start: 20080826, end: 20081127
  2. PREDNISOLONE [Suspect]
     Indication: IMMUNOSUPPRESSION
     Route: 048
     Dates: start: 20081101
  3. PREDNISOLONE [Suspect]
     Route: 048
     Dates: start: 20080628, end: 20081101
  4. BAKTAR [Suspect]
     Indication: ANTIFUNGAL PROPHYLAXIS
     Route: 048
     Dates: start: 20080709, end: 20090108
  5. AMLODIPINE [Concomitant]
     Indication: HYPERTENSION
     Route: 048
     Dates: start: 20080614
  6. PARIET [Concomitant]
     Indication: REFLUX OESOPHAGITIS
     Route: 048
     Dates: start: 20080614
  7. CYANOCOBALAMIN [Concomitant]
     Indication: NEUROPATHY PERIPHERAL
     Route: 048
     Dates: start: 20080709
  8. CALBLOCK [Concomitant]
     Indication: HYPERTENSION
     Route: 048
     Dates: start: 20080615, end: 20090110
  9. FLUITRAN [Concomitant]
     Indication: HYPERTENSION
     Route: 048
     Dates: start: 20080614
  10. CLOSTRIDIUM BUTYRICUM [Concomitant]
     Indication: DISBACTERIOSIS
     Route: 048
     Dates: start: 20080614

REACTIONS (4)
  - ASCITES [None]
  - HEPATIC FUNCTION ABNORMAL [None]
  - TUMOUR MARKER INCREASED [None]
  - WHITE BLOOD CELL COUNT DECREASED [None]
